FAERS Safety Report 6544984-4 (Version None)
Quarter: 2010Q1

REPORT INFORMATION
  Report Type: 
  Country: None (occurrence: None)
  Receive Date: 20100121
  Receipt Date: 20100118
  Transmission Date: 20100710
  Serious: Yes (Hospitalization)
  Sender: FDA-Public Use
  Company Number: A0814493A

PATIENT
  Age: 54 Year
  Sex: Male

DRUGS (2)
  1. AVANDIA [Suspect]
     Indication: DIABETES MELLITUS
     Dosage: 8MG TWICE PER DAY
     Route: 065
     Dates: start: 20051027, end: 20070410
  2. ROSIGLITAZONE MALEATE [Suspect]
     Indication: TYPE 2 DIABETES MELLITUS
     Route: 048

REACTIONS (2)
  - MYOCARDIAL INFARCTION [None]
  - SUICIDAL IDEATION [None]
